FAERS Safety Report 14764690 (Version 2)
Quarter: 2018Q2

REPORT INFORMATION
  Report Type: Spontaneous
  Country: GB (occurrence: GB)
  Receive Date: 20180416
  Receipt Date: 20180424
  Transmission Date: 20180711
  Serious: Yes (Other)
  Sender: FDA-Public Use
  Company Number: GB-SA-2018SA101225

PATIENT
  Sex: Female

DRUGS (14)
  1. AMIODARONE HYDROCHLORIDE. [Suspect]
     Active Substance: AMIODARONE HYDROCHLORIDE
     Route: 065
  2. FULTIUM-D3 [Suspect]
     Active Substance: CHOLECALCIFEROL
     Route: 065
  3. NEBIVOLOL. [Suspect]
     Active Substance: NEBIVOLOL
     Indication: BLOOD PRESSURE MEASUREMENT
     Route: 048
  4. CITALOPRAM [Suspect]
     Active Substance: CITALOPRAM HYDROBROMIDE
     Route: 048
  5. CLOPIDOGREL BISULFATE. [Suspect]
     Active Substance: CLOPIDOGREL BISULFATE
     Route: 048
  6. LANSOPRAZOLE. [Suspect]
     Active Substance: LANSOPRAZOLE
     Route: 048
  7. COLECALCIFEROL [Suspect]
     Active Substance: CHOLECALCIFEROL
     Route: 048
  8. COCODAMOL [Suspect]
     Active Substance: ACETAMINOPHEN\CODEINE PHOSPHATE
     Route: 048
  9. FABRAZYME [Suspect]
     Active Substance: AGALSIDASE BETA
     Route: 041
  10. ACETAMINOPHEN AND CODEINE [Suspect]
     Active Substance: ACETAMINOPHEN\CODEINE PHOSPHATE
     Route: 048
  11. SALBUTAMOL SULFATE [Suspect]
     Active Substance: ALBUTEROL SULFATE
     Indication: COUGH
     Route: 055
  12. PERINDOPRIL [Suspect]
     Active Substance: PERINDOPRIL
     Route: 048
  13. LYRICA [Suspect]
     Active Substance: PREGABALIN
     Route: 065
  14. ASPIRIN. [Suspect]
     Active Substance: ASPIRIN
     Route: 065

REACTIONS (3)
  - Wheezing [Unknown]
  - Cough [Recovered/Resolved]
  - Lower respiratory tract infection [Unknown]
